FAERS Safety Report 14927691 (Version 4)
Quarter: 2018Q3

REPORT INFORMATION
  Report Type: Spontaneous
  Country: US (occurrence: US)
  Receive Date: 20180523
  Receipt Date: 20180803
  Transmission Date: 20181010
  Serious: Yes (Hospitalization)
  Sender: FDA-Public Use
  Company Number: US-PFIZER INC-2018209669

PATIENT
  Age: 51 Year
  Sex: Male

DRUGS (1)
  1. DAPTOMYCIN. [Suspect]
     Active Substance: DAPTOMYCIN
     Indication: STAPHYLOCOCCAL INFECTION
     Dosage: 870 MG (6 MG/KG), 1X/DAY
     Route: 042
     Dates: start: 20180514, end: 20180514

REACTIONS (4)
  - Chills [Recovered/Resolved]
  - Tremor [Recovered/Resolved]
  - Tachycardia [Unknown]
  - Chills [Unknown]

NARRATIVE: CASE EVENT DATE: 20180514
